FAERS Safety Report 4887503-0 (Version None)
Quarter: 2006Q1

REPORT INFORMATION
  Report Type: 
  Country: None (occurrence: None)
  Receive Date: 20060123
  Receipt Date: 20051220
  Transmission Date: 20060701
  Serious: Yes (Hospitalization)
  Sender: FDA-Public Use
  Company Number: 2005AP06561

PATIENT
  Age: 21646 Day
  Sex: Male
  Weight: 70 kg

DRUGS (9)
  1. OMEPRAL [Suspect]
     Indication: GASTROOESOPHAGEAL REFLUX DISEASE
     Route: 048
     Dates: start: 20040716, end: 20051015
  2. LOXONIN [Concomitant]
     Route: 048
     Dates: start: 20040227, end: 20051128
  3. HUSCODE [Concomitant]
     Route: 048
     Dates: start: 20040315, end: 20051107
  4. GASMOTIN [Concomitant]
     Indication: GASTROOESOPHAGEAL REFLUX DISEASE
     Route: 048
     Dates: start: 20040319, end: 20051015
  5. HALCION [Concomitant]
     Route: 048
     Dates: start: 20040319, end: 20051128
  6. BUSCOPAN [Concomitant]
     Indication: GASTROOESOPHAGEAL REFLUX DISEASE
     Route: 048
     Dates: start: 20040514, end: 20051015
  7. TINELAC [Concomitant]
     Route: 048
     Dates: start: 20040603, end: 20051015
  8. URSO [Concomitant]
     Indication: HEPATITIS C
     Route: 048
     Dates: start: 20050311, end: 20051015
  9. KOLANTYL [Concomitant]
     Indication: GASTROOESOPHAGEAL REFLUX DISEASE
     Route: 048
     Dates: start: 20050922, end: 20051015

REACTIONS (2)
  - LUNG INFECTION [None]
  - THERAPY NON-RESPONDER [None]
